FAERS Safety Report 25958443 (Version 2)
Quarter: 2025Q4

REPORT INFORMATION
  Report Type: Spontaneous
  Country: US (occurrence: US)
  Receive Date: 20251024
  Receipt Date: 20251217
  Transmission Date: 20260117
  Serious: No
  Sender: MERCK SHARP & DOHME LLC
  Company Number: US-009507513-2338693

PATIENT
  Age: 64 Year
  Sex: Female

DRUGS (7)
  1. WINREVAIR [Suspect]
     Active Substance: SOTATERCEPT-CSRK
     Indication: Product used for unknown indication
  2. WINREVAIR [Suspect]
     Active Substance: SOTATERCEPT-CSRK
     Dates: start: 20250923, end: 20250923
  3. WINREVAIR [Suspect]
     Active Substance: SOTATERCEPT-CSRK
  4. WINREVAIR [Suspect]
     Active Substance: SOTATERCEPT-CSRK
  5. REMODULIN [Suspect]
     Active Substance: TREPROSTINIL
     Indication: Pulmonary arterial hypertension
     Dosage: STRENGTH: 10 MG/ML, FREQUENCY: CONTINUOUS
     Route: 058
     Dates: start: 202105
  6. SILDENAFIL [Concomitant]
     Active Substance: SILDENAFIL
  7. OPSUMIT [Concomitant]
     Active Substance: MACITENTAN

REACTIONS (2)
  - Oropharyngeal pain [Recovered/Resolved]
  - Telangiectasia [Unknown]

NARRATIVE: CASE EVENT DATE: 20250901
